FAERS Safety Report 18530624 (Version 3)
Quarter: 2020Q4

REPORT INFORMATION
  Report Type: Report from Study
  Country: CO (occurrence: CO)
  Receive Date: 20201121
  Receipt Date: 20201224
  Transmission Date: 20210114
  Serious: Yes (Life-Threatening, Hospitalization, Other)
  Sender: FDA-Public Use
  Company Number: CO-TAKEDA-2020TUS050585

PATIENT
  Age: 35 Year
  Sex: Female
  Weight: 59 kg

DRUGS (5)
  1. HUMAN IMMUNOGLOBULIN; HYALURONIDASE [Suspect]
     Active Substance: HUMAN IMMUNOGLOBULIN G\HYALURONIDASE RECOMBINANT HUMAN
     Dosage: 40 GRAM, MONTHLY
     Route: 058
  2. METHYLPHENIDATE HYDROCHLORIDE. [Concomitant]
     Active Substance: METHYLPHENIDATE HYDROCHLORIDE
     Indication: PRODUCT USED FOR UNKNOWN INDICATION
     Dosage: 10 MILLIGRAM, BID (3 TABLETS IN MORNING AND 3 AT NIGHT)
     Route: 065
  3. FLUTICASONE FUROATE [Concomitant]
     Active Substance: FLUTICASONE FUROATE
     Indication: PRODUCT USED FOR UNKNOWN INDICATION
     Dosage: 30 DAILY PUFF, QD
     Route: 065
  4. HUMAN IMMUNOGLOBULIN; HYALURONIDASE [Suspect]
     Active Substance: HUMAN IMMUNOGLOBULIN G\HYALURONIDASE RECOMBINANT HUMAN
     Indication: PRIMARY IMMUNODEFICIENCY SYNDROME
     Dosage: 50 GRAM, MONTHLY
     Route: 058
  5. NIMODIPINE. [Concomitant]
     Active Substance: NIMODIPINE
     Indication: PRODUCT USED FOR UNKNOWN INDICATION
     Dosage: ONE CAPSULE,QD
     Route: 065

REACTIONS (10)
  - Dyspnoea [Unknown]
  - Oxygen consumption decreased [Unknown]
  - Fatigue [Unknown]
  - Tuberculosis [Unknown]
  - Respiratory failure [Unknown]
  - Pyrexia [Unknown]
  - Cough [Unknown]
  - Pneumonia [Unknown]
  - Weight increased [Unknown]
  - Back pain [Unknown]

NARRATIVE: CASE EVENT DATE: 20200218
